FAERS Safety Report 7583860-5 (Version None)
Quarter: 2011Q2

REPORT INFORMATION
  Report Type: 
  Country: None (occurrence: None)
  Receive Date: 20110630
  Receipt Date: 20110622
  Transmission Date: 20111010
  Serious: Yes (Other)
  Sender: FDA-Public Use
  Company Number: JP-B.I. PHARMACEUTICALS,INC./RIDGEFIELD-2011-BP-15138NB

PATIENT
  Sex: Female
  Weight: 37 kg

DRUGS (6)
  1. PRADAXA [Suspect]
     Indication: EMBOLIC STROKE
     Dosage: 225 MG
     Route: 048
     Dates: start: 20110514
  2. ARICEPT [Concomitant]
     Indication: DEMENTIA
     Dosage: 3 MG
     Route: 048
     Dates: start: 20110512
  3. ZANTAC [Concomitant]
     Indication: HAEMORRHAGE PROPHYLAXIS
     Dosage: 200 MG
     Route: 042
     Dates: start: 20110511, end: 20110513
  4. RADICUT [Concomitant]
     Indication: EMBOLIC STROKE
     Dosage: 60 MG
     Route: 042
     Dates: start: 20110510, end: 20110517
  5. HEPATIN [Concomitant]
     Indication: EMBOLIC STROKE
     Dosage: 15000 U
     Route: 042
     Dates: start: 20110511, end: 20110513
  6. HALOPERIDOL [Concomitant]
     Indication: DEMENTIA
     Dosage: 5 MG
     Route: 042
     Dates: start: 20110517, end: 20110517

REACTIONS (2)
  - INTERNATIONAL NORMALISED RATIO INCREASED [None]
  - PROTHROMBIN TIME PROLONGED [None]
